FAERS Safety Report 8334939-1 (Version None)
Quarter: 2012Q2

REPORT INFORMATION
  Report Type: 
  Country: None (occurrence: None)
  Receive Date: 20120503
  Receipt Date: 20120423
  Transmission Date: 20120825
  Serious: Yes (Hospitalization, Other)
  Sender: FDA-Public Use
  Company Number: US-JNJFOC-20120212296

PATIENT
  Sex: Female
  Weight: 62.14 kg

DRUGS (4)
  1. REMICADE [Suspect]
     Indication: COLITIS ULCERATIVE
     Route: 042
     Dates: start: 20100524
  2. REMICADE [Suspect]
     Route: 042
     Dates: start: 20120223
  3. MULTI-VITAMINS [Concomitant]
     Route: 065
  4. REMICADE [Suspect]
     Route: 042
     Dates: start: 20120103

REACTIONS (3)
  - CAESAREAN SECTION [None]
  - ABNORMAL WEIGHT GAIN [None]
  - MATERNAL EXPOSURE DURING PREGNANCY [None]
